FAERS Safety Report 25001377 (Version 4)
Quarter: 2025Q2

REPORT INFORMATION
  Report Type: Spontaneous
  Country: US (occurrence: US)
  Receive Date: 20250223
  Receipt Date: 20250602
  Transmission Date: 20250716
  Serious: No
  Sender: NOVARTIS
  Company Number: US-002147023-NVSC2025US030245

PATIENT
  Sex: Female

DRUGS (1)
  1. COSENTYX [Suspect]
     Active Substance: SECUKINUMAB
     Indication: Product used for unknown indication
     Dosage: UNK, QMO (300MG/2ML)
     Route: 065
     Dates: start: 202411

REACTIONS (6)
  - Injection site pain [Unknown]
  - Device issue [Unknown]
  - Skin injury [Unknown]
  - Incorrect dose administered [Unknown]
  - Device leakage [Unknown]
  - Product dose omission issue [Unknown]
